FAERS Safety Report 23998625 (Version 6)
Quarter: 2024Q4

REPORT INFORMATION
  Report Type: Report from Study
  Country: KR (occurrence: KR)
  Receive Date: 20240621
  Receipt Date: 20241021
  Transmission Date: 20250115
  Serious: Yes (Other)
  Sender: NOVARTIS
  Company Number: KR-002147023-NVSC2023KR273143

PATIENT
  Sex: Male

DRUGS (4)
  1. LUTATHERA [Suspect]
     Active Substance: LUTETIUM OXODOTREOTIDE LU-177
     Indication: Neuroendocrine tumour
     Dosage: 7.4 GBQ
     Route: 042
     Dates: start: 20231207, end: 20231207
  2. LUTATHERA [Suspect]
     Active Substance: LUTETIUM OXODOTREOTIDE LU-177
     Dosage: 7.4 GBQ
     Route: 042
     Dates: start: 20240201, end: 20240201
  3. LUTATHERA [Suspect]
     Active Substance: LUTETIUM OXODOTREOTIDE LU-177
     Dosage: 7.4 GBQ
     Route: 042
     Dates: start: 20240509, end: 20240509
  4. LUTATHERA [Suspect]
     Active Substance: LUTETIUM OXODOTREOTIDE LU-177
     Dosage: 7.4 GBQ
     Route: 042
     Dates: start: 20240829

REACTIONS (12)
  - Platelet count decreased [Recovered/Resolved]
  - Platelet count decreased [Recovered/Resolved]
  - Dizziness [Recovering/Resolving]
  - Mouth haemorrhage [Recovered/Resolved]
  - Dyspepsia [Recovering/Resolving]
  - Somnolence [Recovering/Resolving]
  - Platelet count decreased [Unknown]
  - Haematoma [Recovered/Resolved]
  - Inappropriate schedule of product administration [Recovered/Resolved]
  - Off label use [Not Recovered/Not Resolved]
  - Blood pressure decreased [Recovered/Resolved]
  - Inappropriate schedule of product administration [Recovered/Resolved]

NARRATIVE: CASE EVENT DATE: 20231201
